FAERS Safety Report 24020633 (Version 1)
Quarter: 2024Q2

REPORT INFORMATION
  Report Type: Report from Study
  Country: BY (occurrence: BY)
  Receive Date: 20240627
  Receipt Date: 20240627
  Transmission Date: 20240716
  Serious: Yes (Death)
  Sender: FDA-Public Use
  Company Number: BY-MYLANLABS-2024M1058247

PATIENT
  Age: 53 Year
  Sex: Male
  Weight: 63 kg

DRUGS (9)
  1. PRETOMANID [Suspect]
     Active Substance: PRETOMANID
     Indication: Product used for unknown indication
     Dosage: 200 MILLIGRAM, QD (200 MG OD PO)
     Route: 048
     Dates: start: 20231221
  2. BEDAQUILINE [Suspect]
     Active Substance: BEDAQUILINE
     Indication: Product used for unknown indication
     Dosage: 400 MILLIGRAM, QD (400MG OD FOR 2 WKS THEN 200 MG TIW PO)
     Route: 048
     Dates: start: 20231221
  3. BEDAQUILINE [Suspect]
     Active Substance: BEDAQUILINE
     Dosage: 200 MILLIGRAM, 3XW (400MG OD FOR 2 WKS THEN 200 MG TIW PO)
     Route: 048
  4. LINEZOLID [Suspect]
     Active Substance: LINEZOLID
     Indication: Product used for unknown indication
     Dosage: 600 MILLIGRAM, QD (600 MG OD PO FOR 16 WEEKS; THEN 300 MG)
     Route: 048
     Dates: start: 20231221
  5. LINEZOLID [Suspect]
     Active Substance: LINEZOLID
     Dosage: 300 MILLIGRAM (600 MG OD PO FOR 16 WEEKS; THEN 300 MG)
     Route: 048
     Dates: end: 202312
  6. MOXIFLOXACIN [Suspect]
     Active Substance: MOXIFLOXACIN
     Indication: Product used for unknown indication
     Dosage: 400 MILLIGRAM, QD (400 MG OD PO)
     Route: 048
     Dates: start: 20231221
  7. RAMIPRIL [Concomitant]
     Active Substance: RAMIPRIL
     Dosage: 10 MILLIGRAM, AM (10 MG IN THE MORNING)
     Route: 065
  8. ATORVASTATIN [Concomitant]
     Active Substance: ATORVASTATIN
     Dosage: 20 MILLIGRAM, PM (20 MG AT NIGHT)
     Route: 065
  9. ASPICARD [Concomitant]
     Dosage: 75 MILLIGRAM, QD (75 MG AT LUNCH)
     Route: 065

REACTIONS (4)
  - Acute left ventricular failure [Fatal]
  - Myocardial ischaemia [Fatal]
  - Aortic arteriosclerosis [Fatal]
  - Arteriosclerosis coronary artery [Fatal]

NARRATIVE: CASE EVENT DATE: 20240528
